FAERS Safety Report 17793326 (Version 1)
Quarter: 2020Q2

REPORT INFORMATION
  Report Type: Spontaneous
  Country: GB (occurrence: GB)
  Receive Date: 20200515
  Receipt Date: 20200515
  Transmission Date: 20200714
  Serious: Yes (Other)
  Sender: FDA-Public Use
  Company Number: NVSC2020GB131111

PATIENT
  Sex: Female

DRUGS (1)
  1. CYCLOSPORINE. [Suspect]
     Active Substance: CYCLOSPORINE
     Indication: ECZEMA
     Dosage: UNK
     Route: 065
     Dates: start: 2018

REACTIONS (4)
  - Headache [Unknown]
  - Tongue ulceration [Unknown]
  - Mouth ulceration [Unknown]
  - Eye pain [Unknown]

NARRATIVE: CASE EVENT DATE: 2018
